FAERS Safety Report 6153981-2 (Version None)
Quarter: 2009Q2

REPORT INFORMATION
  Report Type: 
  Country: None (occurrence: None)
  Receive Date: 20090414
  Receipt Date: 20090407
  Transmission Date: 20091009
  Serious: Yes (Other)
  Sender: FDA-Public Use
  Company Number: SE-BRISTOL-MYERS SQUIBB COMPANY-14517627

PATIENT
  Age: 61 Year
  Sex: Male

DRUGS (16)
  1. ORENCIA [Suspect]
     Indication: RHEUMATOID ARTHRITIS
     Dosage: 1ST INFUSION ON 22SEP08, LAST INFUSION 12MAR09.TOTAL INFUSIONS:8.
     Route: 042
     Dates: start: 20090211
  2. PLAVIX [Suspect]
  3. METOJECT [Suspect]
  4. VOLTAREN [Suspect]
  5. LYRICA [Suspect]
  6. SIMVASTATIN [Suspect]
  7. OXYCONTIN [Suspect]
  8. SELOKEN [Suspect]
  9. ENALAPRIL [Suspect]
  10. TROMBYL [Suspect]
  11. OXYNORM [Concomitant]
  12. GLUCOSAMINE [Concomitant]
  13. KALCIPOS-D [Concomitant]
     Dosage: 1DF=500MG/400IU, CHEWABLE TABLET
  14. FOLACIN [Concomitant]
  15. ACETAMINOPHEN [Concomitant]
  16. PANTOPRAZOLE SODIUM [Concomitant]

REACTIONS (1)
  - THROMBOCYTOPENIA [None]
